FAERS Safety Report 16601632 (Version 2)
Quarter: 2019Q3

REPORT INFORMATION
  Report Type: Report from Study
  Country: US (occurrence: US)
  Receive Date: 20190719
  Receipt Date: 20190819
  Transmission Date: 20191004
  Serious: Yes (Other)
  Sender: FDA-Public Use
  Company Number: US-AMGEN-USASP2019111188

PATIENT
  Age: 72 Year
  Sex: Male

DRUGS (2)
  1. NPLATE [Suspect]
     Active Substance: ROMIPLOSTIM
     Dosage: 250 UNITS (4 MCG/KG/WEEK)
     Route: 065
     Dates: end: 20190523
  2. NPLATE [Suspect]
     Active Substance: ROMIPLOSTIM
     Indication: IMMUNE THROMBOCYTOPENIC PURPURA
     Dosage: USED TO BE ON A DOSE OF 5
     Route: 065
     Dates: start: 2015

REACTIONS (2)
  - Platelet count decreased [Recovering/Resolving]
  - Therapeutic product effect decreased [Unknown]
